FAERS Safety Report 26040277 (Version 1)
Quarter: 2025Q4

REPORT INFORMATION
  Report Type: Report from Study
  Country: US (occurrence: US)
  Receive Date: 20251113
  Receipt Date: 20251113
  Transmission Date: 20260118
  Serious: Yes (Other)
  Sender: ROCHE
  Company Number: US-ROCHE-10000389850

PATIENT
  Age: 53 Year
  Sex: Male
  Weight: 115.21 kg

DRUGS (15)
  1. MYCOPHENOLATE MOFETIL [Suspect]
     Active Substance: MYCOPHENOLATE MOFETIL
     Indication: Renal transplant
     Dosage: TAKE 3 TABS PO BID, 750 MG
     Route: 048
     Dates: start: 20250911
  2. MYCOPHENOLATE MOFETIL [Suspect]
     Active Substance: MYCOPHENOLATE MOFETIL
     Route: 065
     Dates: start: 20250924
  3. SIROLIMUS [Concomitant]
     Active Substance: SIROLIMUS
  4. FAMOTIDINE [Concomitant]
     Active Substance: FAMOTIDINE
  5. ATORVASTATIN [Concomitant]
     Active Substance: ATORVASTATIN
  6. EZETIMIBE [Concomitant]
     Active Substance: EZETIMIBE
  7. B COMPLEX WITH FOLIC ACID [Concomitant]
  8. ERGOCALCIFEROL [Concomitant]
     Active Substance: ERGOCALCIFEROL
  9. LISINOPRIL [Concomitant]
     Active Substance: LISINOPRIL
  10. LISINOPRIL [Concomitant]
     Active Substance: LISINOPRIL
  11. METOPROLOL TARTRATE [Concomitant]
     Active Substance: METOPROLOL TARTRATE
  12. CICLOPIROX [Concomitant]
     Active Substance: CICLOPIROX
     Dosage: 8% SOLUTION
  13. CALCITRIOL [Concomitant]
     Active Substance: CALCITRIOL
  14. TRETINOIN [Concomitant]
     Active Substance: TRETINOIN
     Dosage: 0.025%
  15. ASPIRIN [Concomitant]
     Active Substance: ASPIRIN
     Dosage: DELAYED RELEASE

REACTIONS (19)
  - Bronchitis [Unknown]
  - Blood alkaline phosphatase increased [Unknown]
  - Essential hypertension [Unknown]
  - Deafness [Recovered/Resolved]
  - Hypomagnesaemia [Unknown]
  - Immunodeficiency [Unknown]
  - Metabolic acidosis [Unknown]
  - Type V hyperlipidaemia [Unknown]
  - Melanocytic naevus [Unknown]
  - Obstructive nephropathy [Unknown]
  - Vitreous opacities [Unknown]
  - Pain in extremity [Unknown]
  - Porokeratosis [Unknown]
  - Renal hypertension [Unknown]
  - Seasonal allergy [Unknown]
  - Hyperparathyroidism secondary [Unknown]
  - Chronic kidney disease [Unknown]
  - Incorrect product dosage form administered [Unknown]
  - Product prescribing error [Unknown]

NARRATIVE: CASE EVENT DATE: 20250924
